FAERS Safety Report 20085983 (Version 1)
Quarter: 2021Q4

REPORT INFORMATION
  Report Type: Spontaneous
  Country: US (occurrence: None)
  Receive Date: 20211117
  Receipt Date: 20211117
  Transmission Date: 20220303
  Serious: Yes (Other)
  Sender: FDA-Public Use
  Company Number: None

PATIENT
  Age: 61 Year
  Sex: Female

DRUGS (4)
  1. CAPECITABINE [Suspect]
     Active Substance: CAPECITABINE
     Indication: Colon cancer
     Dosage: FREQUENCY : TWICE A DAY;?
     Route: 048
     Dates: start: 20210902
  2. CAPECITABINE [Suspect]
     Active Substance: CAPECITABINE
  3. ALBUTEROL AER HFA [Concomitant]
  4. PROBIOTIC CAP [Concomitant]

REACTIONS (2)
  - White blood cell count decreased [None]
  - Fracture [None]

NARRATIVE: CASE EVENT DATE: 20211101
